FAERS Safety Report 23563406 (Version 2)
Quarter: 2025Q4

REPORT INFORMATION
  Report Type: Spontaneous
  Country: EU (occurrence: EU)
  Receive Date: 20240226
  Receipt Date: 20251110
  Transmission Date: 20260118
  Serious: Yes (Other)
  Sender: UCB
  Company Number: None

PATIENT
  Weight: 90 kg

DRUGS (13)
  1. LEVETIRACETAM [Suspect]
     Active Substance: LEVETIRACETAM
     Indication: Epilepsy
     Dosage: 1-0-2
  2. MAYZENT [Suspect]
     Active Substance: SIPONIMOD
     Indication: Multiple sclerosis
     Dosage: 0.25, 1X DAILY
  3. MAYZENT [Suspect]
     Active Substance: SIPONIMOD
     Dosage: 1.25MG, 1X DAILY
  4. MAYZENT [Suspect]
     Active Substance: SIPONIMOD
     Dosage: 0.5 MG, 1X DAILY
  5. MAYZENT [Suspect]
     Active Substance: SIPONIMOD
     Dosage: 2 MG, 1X DAILY
  6. MAYZENT [Suspect]
     Active Substance: SIPONIMOD
     Dosage: 1-0-0
  7. MAYZENT [Suspect]
     Active Substance: SIPONIMOD
     Dosage: 1-1-0
  8. MAYZENT [Suspect]
     Active Substance: SIPONIMOD
     Dosage: 0.25MG, 1X DAILY
  9. MAYZENT [Suspect]
     Active Substance: SIPONIMOD
     Dosage: 0.75 MG, 1X DAILY
  10. BACLOFEN [Concomitant]
     Active Substance: BACLOFEN
     Indication: Product used for unknown indication
     Dosage: 1-1-1-1
  11. TOLPERISONE [Concomitant]
     Active Substance: TOLPERISONE
     Indication: Product used for unknown indication
     Dosage: 1-0-1
  12. MODAFINIL [Concomitant]
     Active Substance: MODAFINIL
     Indication: Product used for unknown indication
     Dosage: 1-0-0
  13. GABAPENTIN [Concomitant]
     Active Substance: GABAPENTIN
     Indication: Product used for unknown indication
     Dosage: 3 DAILY

REACTIONS (3)
  - Lymphopenia [Recovered/Resolved]
  - Leukopenia [Recovered/Resolved]
  - Laboratory test abnormal [Unknown]
